FAERS Safety Report 19027970 (Version 1)
Quarter: 2021Q1

REPORT INFORMATION
  Report Type: Report from Study
  Country: US (occurrence: US)
  Receive Date: 20210319
  Receipt Date: 20210319
  Transmission Date: 20210420
  Serious: No
  Sender: FDA-Public Use
  Company Number: US-ACADIA PHARMACEUTICALS INC.-ACA-2021-PIM-000778

PATIENT
  Sex: Female

DRUGS (13)
  1. ASPIRIN [ACETYLSALICYLIC ACID] [Concomitant]
     Active Substance: ASPIRIN
  2. MYRBETRIQ [Concomitant]
     Active Substance: MIRABEGRON
  3. RYTARY [Concomitant]
     Active Substance: CARBIDOPA\LEVODOPA
  4. CLONAZEPAM. [Concomitant]
     Active Substance: CLONAZEPAM
  5. FLUDROCORTISON [Concomitant]
     Active Substance: FLUDROCORTISONE
  6. PANTOPRAZOLE [Concomitant]
     Active Substance: PANTOPRAZOLE
  7. CLONIDINE HCL [Concomitant]
     Active Substance: CLONIDINE HYDROCHLORIDE
  8. SIMVASTATIN. [Concomitant]
     Active Substance: SIMVASTATIN
  9. FAMOTIDINE. [Concomitant]
     Active Substance: FAMOTIDINE
  10. MEMANTINE HCL [Concomitant]
     Active Substance: MEMANTINE
  11. MIDODRINE HCL [Concomitant]
     Active Substance: MIDODRINE HYDROCHLORIDE
  12. NUPLAZID [Suspect]
     Active Substance: PIMAVANSERIN TARTRATE
     Indication: PARKINSON^S DISEASE
     Dosage: 34 MILLIGRAM, QD
     Route: 048
  13. OCUVITE ADULT 50+ [ASCORBIC ACID;COPPER GLUCONATE;FISH OIL;TOCOPHEROL; [Concomitant]

REACTIONS (1)
  - Dizziness [Recovered/Resolved]
